FAERS Safety Report 4592857-9 (Version None)
Quarter: 2005Q1

REPORT INFORMATION
  Report Type: 
  Country: None (occurrence: None)
  Receive Date: 20050228
  Receipt Date: 20050216
  Transmission Date: 20050727
  Serious: Yes (Other)
  Sender: FDA-Public Use
  Company Number: BE-ROCHE-395625

PATIENT
  Age: 81 Year
  Sex: Female
  Weight: 65 kg

DRUGS (5)
  1. BONDRONAT [Suspect]
     Indication: DRUG USE FOR UNKNOWN INDICATION
     Route: 048
     Dates: start: 20041122
  2. AROMASIN [Suspect]
     Indication: BREAST CANCER
     Route: 048
     Dates: start: 20040715
  3. ZANIDIP [Concomitant]
     Indication: HYPERTENSION
     Dates: start: 19980615
  4. COVERSYL [Concomitant]
     Indication: HYPERTENSION
     Route: 048
     Dates: start: 19980615
  5. NEUROFEN [Concomitant]
     Indication: BONE PAIN

REACTIONS (2)
  - ABDOMINAL PAIN [None]
  - DIARRHOEA [None]
